FAERS Safety Report 9653296 (Version 1)
Quarter: 2013Q4

REPORT INFORMATION
  Report Type: Spontaneous
  Country: US (occurrence: None)
  Receive Date: 20131028
  Receipt Date: 20131028
  Transmission Date: 20140711
  Serious: Yes (Disabling)
  Sender: FDA-Public Use
  Company Number: None

PATIENT
  Age: 32 Year
  Sex: Male
  Weight: 81.65 kg

DRUGS (1)
  1. CIPROFLOXIN [Suspect]
     Indication: PROSTATIC DISORDER
     Dosage: 1 PILL TWICE DAILY
     Route: 048
     Dates: start: 20110331, end: 20110404

REACTIONS (8)
  - Arthralgia [None]
  - Muscular weakness [None]
  - Bone pain [None]
  - Pain [None]
  - Tendon disorder [None]
  - Nervous system disorder [None]
  - Bone disorder [None]
  - Job dissatisfaction [None]
